FAERS Safety Report 6653235-1 (Version None)
Quarter: 2010Q1

REPORT INFORMATION
  Report Type: 
  Country: None (occurrence: None)
  Receive Date: 20100326
  Receipt Date: 20100316
  Transmission Date: 20100710
  Serious: Yes (Hospitalization)
  Sender: FDA-Public Use
  Company Number: FR-BRISTOL-MYERS SQUIBB COMPANY-15024060

PATIENT
  Age: 82 Year
  Sex: Female

DRUGS (12)
  1. ACTISKENAN CAPS 10 MG [Suspect]
     Route: 048
     Dates: end: 20100108
  2. SINEMET [Interacting]
     Dosage: 1DF=3.5(NO UNITS MENTIONED). SINEMET100MG.
  3. DURAGESIC-100 [Interacting]
     Dosage: FOR EVERY 3DAYS.
     Route: 062
     Dates: end: 20100108
  4. KETOPROFEN [Interacting]
     Route: 030
     Dates: end: 20100108
  5. STILNOX [Interacting]
     Dosage: 1TAB
     Route: 048
     Dates: end: 20100108
  6. LEXOMIL [Interacting]
     Route: 048
     Dates: end: 20100108
  7. LAMALINE [Interacting]
     Dosage: 1 DF = 2INTAKES
     Route: 048
     Dates: end: 20100108
  8. DEROXAT [Concomitant]
  9. REQUIP [Concomitant]
  10. DILTIAZEM HCL [Concomitant]
  11. LEVOTHYROX [Concomitant]
  12. PARIET [Concomitant]

REACTIONS (9)
  - CONFUSIONAL STATE [None]
  - CONSTIPATION [None]
  - DRUG INTERACTION [None]
  - DYSURIA [None]
  - EXTRAPYRAMIDAL DISORDER [None]
  - MALAISE [None]
  - NIGHTMARE [None]
  - ORTHOSTATIC HYPOTENSION [None]
  - PSYCHOMOTOR RETARDATION [None]
